FAERS Safety Report 15723043 (Version 1)
Quarter: 2018Q4

REPORT INFORMATION
  Report Type: Spontaneous
  Country: JP (occurrence: JP)
  Receive Date: 20181214
  Receipt Date: 20181214
  Transmission Date: 20190205
  Serious: Yes (Hospitalization)
  Sender: FDA-Public Use
  Company Number: JP-SA-2018SA342154

PATIENT
  Age: 37 Year
  Sex: Female
  Weight: 45 kg

DRUGS (8)
  1. ISCOTIN [Suspect]
     Active Substance: ISONIAZID
     Indication: TUBERCULOUS PLEURISY
     Dosage: 300 MG, QD
  2. ETHAMBUTOL DIHYDROCHLORIDE [Concomitant]
     Active Substance: ETHAMBUTOL HYDROCHLORIDE
  3. LEVOFLOXACIN. [Suspect]
     Active Substance: LEVOFLOXACIN
     Indication: MASS
     Dosage: 400 MG, QD
     Route: 048
  4. RIFADIN [Suspect]
     Active Substance: RIFAMPIN
     Dosage: 450 MG, QD
  5. ISCOTIN [Suspect]
     Active Substance: ISONIAZID
     Dosage: 300 MG, QD
  6. RIFADIN [Suspect]
     Active Substance: RIFAMPIN
     Indication: TUBERCULOUS PLEURISY
     Dosage: 450 MG, QD
  7. PYRAMIDE [Suspect]
     Active Substance: PYRAZINAMIDE
     Indication: TUBERCULOUS PLEURISY
     Dosage: 1 G, QD
     Route: 048
  8. STREPTOMYCIN SULFATE. [Concomitant]
     Active Substance: STREPTOMYCIN SULFATE

REACTIONS (6)
  - Pyrexia [Recovered/Resolved]
  - Hyperthermia [Unknown]
  - Hepatic enzyme increased [Unknown]
  - Mass [Recovered/Resolved]
  - Menstruation irregular [Unknown]
  - Platelet count decreased [Unknown]
